FAERS Safety Report 6739039-X (Version None)
Quarter: 2010Q2

REPORT INFORMATION
  Report Type: 
  Country: None (occurrence: None)
  Receive Date: 20100524
  Receipt Date: 20100524
  Transmission Date: 20101027
  Serious: Yes (Life-Threatening)
  Sender: FDA-Public Use
  Company Number: None

PATIENT
  Age: 69 Year
  Sex: Male
  Weight: 80 kg

DRUGS (15)
  1. FENTANYL [Suspect]
     Indication: OESOPHAGOGASTRODUODENOSCOPY
     Dosage: 100MCG X1 DOSE IV BOLUS
     Route: 040
     Dates: start: 20100520, end: 20100520
  2. FENTANYL [Suspect]
     Indication: SEDATION
     Dosage: 100MCG X1 DOSE IV BOLUS
     Route: 040
     Dates: start: 20100520, end: 20100520
  3. AMIODARONE HYDROCHLORIDE [Concomitant]
  4. HYDRALAZINE HCL [Concomitant]
  5. SIMVASTATIN [Concomitant]
  6. SEVELAMIR [Concomitant]
  7. DIGOXIN [Concomitant]
  8. NAFCILLIN [Concomitant]
  9. PANTOPRAZOLE [Concomitant]
  10. ISOSORBIDE [Concomitant]
  11. MONONITRATE [Concomitant]
  12. METRONIDAZOLE [Concomitant]
  13. RENA-VITE [Concomitant]
  14. SUCRALFATE [Concomitant]
  15. OCTREOTIDE ACETATE [Concomitant]

REACTIONS (3)
  - ELECTROMECHANICAL DISSOCIATION [None]
  - RESPIRATORY DEPRESSION [None]
  - UNRESPONSIVE TO STIMULI [None]
